FAERS Safety Report 5044540-3 (Version None)
Quarter: 2006Q2

REPORT INFORMATION
  Report Type: 
  Country: None (occurrence: None)
  Receive Date: 20060629
  Receipt Date: 20060619
  Transmission Date: 20061013
  Serious: Yes (Hospitalization)
  Sender: FDA-Public Use
  Company Number: L06-UKI-02572-03

PATIENT
  Sex: Female

DRUGS (3)
  1. CARBAMAZEPINE [Suspect]
     Indication: PETIT MAL EPILEPSY
  2. VIGABATRIN [Suspect]
     Indication: PETIT MAL EPILEPSY
  3. VALPROATE SODIUM [Concomitant]

REACTIONS (6)
  - CONDITION AGGRAVATED [None]
  - DRUG INEFFECTIVE [None]
  - LEARNING DISORDER [None]
  - MYOCLONUS [None]
  - PETIT MAL EPILEPSY [None]
  - URINARY INCONTINENCE [None]
